FAERS Safety Report 16638470 (Version 2)
Quarter: 2019Q3

REPORT INFORMATION
  Report Type: Report from Study
  Country: AU (occurrence: AU)
  Receive Date: 20190726
  Receipt Date: 20190731
  Transmission Date: 20191004
  Serious: Yes (Death)
  Sender: FDA-Public Use
  Company Number: AU-EXELIXIS-XL18419022745

PATIENT
  Age: 48 Year
  Sex: Male
  Weight: 100.3 kg

DRUGS (2)
  1. BLINDED XL184 [Suspect]
     Active Substance: CABOZANTINIB
     Indication: MEDULLARY THYROID CANCER
     Dosage: UNK
     Dates: end: 20190708
  2. BLINDED XL184 [Suspect]
     Active Substance: CABOZANTINIB
     Indication: MEDULLARY THYROID CANCER
     Dosage: UNK
     Dates: end: 20190708

REACTIONS (1)
  - Death [Fatal]

NARRATIVE: CASE EVENT DATE: 20190721
